FAERS Safety Report 22525865 (Version 1)
Quarter: 2023Q2

REPORT INFORMATION
  Report Type: Spontaneous
  Country: US (occurrence: US)
  Receive Date: 20230606
  Receipt Date: 20230606
  Transmission Date: 20230722
  Serious: Yes (Other)
  Sender: FDA-Public Use
  Company Number: US-AMERICAN REGENT INC-2023001352

PATIENT
  Sex: Male

DRUGS (5)
  1. ADENOSINE [Suspect]
     Active Substance: ADENOSINE
     Indication: Tachycardia
     Dosage: ADMINISTERED X3
     Route: 065
  2. ADENOSINE [Suspect]
     Active Substance: ADENOSINE
     Dosage: 0.4 MG/KG; X3
     Route: 065
  3. ESMOLOL HYDROCHLORIDE [Suspect]
     Active Substance: ESMOLOL HYDROCHLORIDE
     Indication: Ventricular tachycardia
     Dosage: 500 MICROGRAM PER KILOGRAM (LOADED)
     Route: 042
  4. ESMOLOL HYDROCHLORIDE [Suspect]
     Active Substance: ESMOLOL HYDROCHLORIDE
     Dosage: 100 MICROGRAM PER KILOGRAM PER MINUTE
     Route: 042
  5. ESMOLOL HYDROCHLORIDE [Suspect]
     Active Substance: ESMOLOL HYDROCHLORIDE
     Dosage: TITRATION TO 400 MICROGRAM PER KILOGRAM PER MINUTE OVER 2 HOUR PERIOD
     Route: 042

REACTIONS (7)
  - Atrioventricular block [Unknown]
  - Bundle branch block right [Recovered/Resolved]
  - Haemodynamic instability [Recovered/Resolved]
  - Condition aggravated [Recovered/Resolved]
  - Drug ineffective for unapproved indication [Recovered/Resolved]
  - Product use in unapproved indication [Recovered/Resolved]
  - Product use issue [Recovered/Resolved]
